FAERS Safety Report 25032310 (Version 1)
Quarter: 2025Q1

REPORT INFORMATION
  Report Type: Spontaneous
  Country: SK (occurrence: SK)
  Receive Date: 20250303
  Receipt Date: 20250303
  Transmission Date: 20250409
  Serious: Yes (Hospitalization, Other)
  Sender: BAXTER
  Company Number: SK-BAXTER-2024BAX022979

PATIENT
  Age: 33 Year
  Sex: Female
  Weight: 83 kg

DRUGS (9)
  1. IFOSFAMIDE [Suspect]
     Active Substance: IFOSFAMIDE
     Indication: Chemotherapy
     Route: 065
  2. IFOSFAMIDE [Suspect]
     Active Substance: IFOSFAMIDE
     Indication: Follicular lymphoma refractory
     Route: 065
     Dates: start: 20240629, end: 20240629
  3. CYCLOPHOSPHAMIDE [Suspect]
     Active Substance: CYCLOPHOSPHAMIDE
     Indication: Neoplasm malignant
     Route: 065
  4. DOXORUBICIN [Suspect]
     Active Substance: DOXORUBICIN
     Indication: Neoplasm malignant
     Route: 065
  5. MESNA [Suspect]
     Active Substance: MESNA
     Indication: Follicular lymphoma refractory
     Route: 065
     Dates: start: 20240629, end: 20240629
  6. MESNA [Suspect]
     Active Substance: MESNA
     Route: 065
     Dates: start: 20240630, end: 20240630
  7. CARBOPLATIN [Suspect]
     Active Substance: CARBOPLATIN
     Indication: Chemotherapy
     Route: 065
  8. ETOPOSIDE [Suspect]
     Active Substance: ETOPOSIDE
     Indication: Chemotherapy
     Route: 065
  9. Stoptussin [Concomitant]
     Indication: Acute sinusitis
     Route: 065
     Dates: start: 20240701

REACTIONS (1)
  - Febrile neutropenia [Recovered/Resolved]

NARRATIVE: CASE EVENT DATE: 20240706
